FAERS Safety Report 9054725 (Version 5)
Quarter: 2016Q1

REPORT INFORMATION
  Report Type: Report from Study
  Country: BR (occurrence: BR)
  Receive Date: 20130208
  Receipt Date: 20160216
  Transmission Date: 20160526
  Serious: Yes (Other)
  Sender: FDA-Public Use
  Company Number: PHHY2013BR011658

PATIENT
  Sex: Female
  Weight: 50 kg

DRUGS (16)
  1. SEROQUEL [Concomitant]
     Active Substance: QUETIAPINE FUMARATE
     Indication: HALLUCINATION
     Dosage: 1 DF, QD
     Route: 048
  2. AMANTADINE HYDROCHLORIDE. [Concomitant]
     Active Substance: AMANTADINE HYDROCHLORIDE
     Indication: PARKINSON^S DISEASE
     Dosage: 2 DF, QD (20 YEARS AGO)
     Route: 048
  3. CYMBALTA [Concomitant]
     Active Substance: DULOXETINE HYDROCHLORIDE
     Indication: DEPRESSION
     Dosage: 1 DF, QD (6 YEARS AGO)
     Route: 048
  4. PANTOPRAZOL [Concomitant]
     Active Substance: PANTOPRAZOLE SODIUM
     Indication: PROPHYLAXIS
     Dosage: 1 DF, QD (STARTED 2 YEARS AGO)
     Route: 048
  5. SELEGILINE HYDROCHLORIDE. [Concomitant]
     Active Substance: SELEGILINE HYDROCHLORIDE
     Indication: PARKINSON^S DISEASE
     Dosage: 3 DF, QD (20 YEARS AGO)
     Route: 048
  6. AMANTADINE [Concomitant]
     Active Substance: AMANTADINE
     Indication: PARKINSON^S DISEASE
     Dosage: 3 DF, QD (STARTED 17 YEARS AGO)
     Route: 048
  7. QUETIAPINE [Concomitant]
     Active Substance: QUETIAPINE
     Indication: SPEECH DISORDER
     Dosage: 1 DF, QD (STARTED 4 YEARS AGO)
     Route: 048
  8. SELEGILINE [Concomitant]
     Active Substance: SELEGILINE
     Indication: PARKINSON^S DISEASE
     Dosage: 3 DF, QD (5MG) (STARTED 17 YEARS AGO)
     Route: 048
  9. ASPIRINA PREVENT [Concomitant]
     Active Substance: ASPIRIN
     Indication: PRODUCT USED FOR UNKNOWN INDICATION
     Dosage: 1 DF, QD (3 YEARS AGO)
     Route: 048
  10. STALEVO [Concomitant]
     Active Substance: CARBIDOPA\ENTACAPONE\LEVODOPA
     Indication: PARKINSON^S DISEASE
     Dosage: 3DF, QD (STARTED 5 YEARS AGO)
     Route: 048
     Dates: start: 2011
  11. LABIRIN [Concomitant]
     Active Substance: BETAHISTINE
     Indication: DIZZINESS
     Dosage: 2 DF, QD (STARTED 6 MONTHS AGO)
     Route: 048
  12. ASPIRIN. [Concomitant]
     Active Substance: ASPIRIN
     Indication: PROPHYLAXIS
     Dosage: 1 DF, QD (STARTED 5 YEARS AGO)
     Route: 048
  13. ACLASTA [Suspect]
     Active Substance: ZOLEDRONIC ACID
     Indication: OSTEOPOROSIS
     Dosage: 5 MG, Q12MO
     Route: 042
     Dates: start: 2012
  14. ACLASTA [Suspect]
     Active Substance: ZOLEDRONIC ACID
     Indication: BONE DISORDER
     Dosage: 5 MG, Q12MO
     Route: 042
     Dates: start: 201503
  15. QUETIAPINE [Concomitant]
     Active Substance: QUETIAPINE
     Indication: VISUAL IMPAIRMENT
  16. PANTOPRAZOLE [Concomitant]
     Active Substance: PANTOPRAZOLE SODIUM
     Indication: PRODUCT USED FOR UNKNOWN INDICATION
     Route: 065

REACTIONS (11)
  - Hallucination [Recovered/Resolved]
  - Fall [Recovered/Resolved]
  - Decreased immune responsiveness [Recovering/Resolving]
  - Rib fracture [Not Recovered/Not Resolved]
  - Haematoma [Recovered/Resolved]
  - Dizziness [Not Recovered/Not Resolved]
  - Pain [Recovered/Resolved]
  - Contusion [Recovered/Resolved]
  - Influenza [Recovered/Resolved]
  - Facial bones fracture [Recovered/Resolved]
  - Spinal pain [Not Recovered/Not Resolved]
